FAERS Safety Report 23931677 (Version 1)
Quarter: 2024Q2

REPORT INFORMATION
  Report Type: Spontaneous
  Country: US (occurrence: US)
  Receive Date: 20240603
  Receipt Date: 20240603
  Transmission Date: 20240716
  Serious: Yes (Hospitalization, Other)
  Sender: FDA-Public Use
  Company Number: US-ALEMBIC PHARMACUETICALS LIMITED-2024SCAL000709

PATIENT

DRUGS (3)
  1. BUPROPION HYDROCHLORIDE [Interacting]
     Active Substance: BUPROPION HYDROCHLORIDE
     Indication: Product used for unknown indication
     Dosage: UNK
     Route: 065
  2. HERBALS\MITRAGYNINE [Interacting]
     Active Substance: HERBALS\MITRAGYNINE
     Indication: Product used for unknown indication
     Dosage: UNK
     Route: 065
  3. SERTRALINE [Suspect]
     Active Substance: SERTRALINE HYDROCHLORIDE
     Indication: Product used for unknown indication
     Dosage: UNK
     Route: 065

REACTIONS (11)
  - Serotonin syndrome [Unknown]
  - Seizure [Unknown]
  - Clonic convulsion [Recovering/Resolving]
  - Vomiting [Unknown]
  - Headache [Unknown]
  - Agitation [Recovered/Resolved]
  - Tremor [Unknown]
  - Hyperreflexia [Unknown]
  - Drug interaction [Unknown]
  - Clonus [Recovering/Resolving]
  - Condition aggravated [Recovering/Resolving]
